FAERS Safety Report 7352062-X (Version None)
Quarter: 2011Q1

REPORT INFORMATION
  Report Type: 
  Country: None (occurrence: None)
  Receive Date: 20110315
  Receipt Date: 20110307
  Transmission Date: 20110831
  Serious: Yes (Other)
  Sender: FDA-Public Use
  Company Number: US-ASTELLAS-2011US000995

PATIENT
  Age: 30 Year
  Sex: Female

DRUGS (4)
  1. PROGRAF [Suspect]
     Indication: LUNG TRANSPLANT
     Dosage: UNK
     Route: 065
  2. AZATHIOPRINE [Concomitant]
     Indication: INTERSTITIAL LUNG DISEASE
     Dosage: UNK
     Route: 065
  3. PREDNISONE [Concomitant]
     Indication: INTERSTITIAL LUNG DISEASE
     Dosage: UNK
     Route: 065
  4. PROGRAF [Suspect]
     Indication: INTERSTITIAL LUNG DISEASE

REACTIONS (4)
  - LUNG TRANSPLANT REJECTION [None]
  - PNEUMONIA [None]
  - TRANSPLANT FAILURE [None]
  - PNEUMOTHORAX [None]
